FAERS Safety Report 9404445 (Version 2)
Quarter: 2013Q3

REPORT INFORMATION
  Report Type: Spontaneous
  Country: US (occurrence: None)
  Receive Date: 20130711
  Receipt Date: 20130725
  Transmission Date: 20140515
  Serious: Yes (Death)
  Sender: FDA-Public Use
  Company Number: 1713747-2013-99917

PATIENT
  Sex: 0

DRUGS (2)
  1. IMMODIUM [Suspect]
  2. FRESENIUS HEMODIALYSIS MACHINE, DIALYZER, BLOODLINES, GRANUFLO, NATURALYTE [Concomitant]

REACTIONS (4)
  - Cardiovascular disorder [None]
  - Procedural hypotension [None]
  - Unresponsive to stimuli [None]
  - Arrhythmia [None]
